FAERS Safety Report 5574980-5 (Version None)
Quarter: 2007Q4

REPORT INFORMATION
  Report Type: 
  Country: None (occurrence: None)
  Receive Date: 20071227
  Receipt Date: 20071219
  Transmission Date: 20080405
  Serious: Yes (Other)
  Sender: FDA-Public Use
  Company Number: B0500806A

PATIENT
  Age: 71 Year
  Sex: Male

DRUGS (2)
  1. AVODART [Suspect]
     Route: 048
     Dates: start: 20070201, end: 20071215
  2. TAMSULOSIN HCL [Suspect]
     Route: 048
     Dates: start: 20070201, end: 20071215

REACTIONS (5)
  - ANGIOEDEMA [None]
  - DYSPNOEA [None]
  - OEDEMA [None]
  - OLIGURIA [None]
  - PRURITUS [None]
